FAERS Safety Report 9242786 (Version 2)
Quarter: 2013Q2

REPORT INFORMATION
  Report Type: Report from Study
  Country: US (occurrence: US)
  Receive Date: 20130419
  Receipt Date: 20130510
  Transmission Date: 20140414
  Serious: Yes (Other)
  Sender: FDA-Public Use
  Company Number: PHEH2012US011644

PATIENT
  Age: 56 Year
  Sex: Female

DRUGS (4)
  1. GLEEVEC [Suspect]
     Indication: CHRONIC MYELOID LEUKAEMIA
     Dosage: 400 MG, DAILY
     Route: 048
     Dates: start: 20120604
  2. GLEEVEC [Suspect]
     Dosage: 400 MG QD
     Route: 048
     Dates: start: 20120606
  3. GLEEVEC [Suspect]
     Dosage: 400 MG QD
     Route: 048
     Dates: start: 20121130
  4. GLEEVEC [Suspect]
     Dosage: 400 MG, DAILY
     Route: 048
     Dates: start: 20121208

REACTIONS (12)
  - Cholecystitis [Unknown]
  - Blood potassium decreased [Unknown]
  - Nausea [Unknown]
  - Vomiting [Unknown]
  - Malaise [Unknown]
  - Diarrhoea [Unknown]
  - Erythema [Unknown]
  - Periorbital oedema [Unknown]
  - Weight decreased [Unknown]
  - Headache [Unknown]
  - Decreased appetite [Unknown]
  - Cough [Unknown]
